FAERS Safety Report 10208605 (Version 4)
Quarter: 2014Q3

REPORT INFORMATION
  Report Type: Report from Study
  Country: US (occurrence: US)
  Receive Date: 20140530
  Receipt Date: 20140808
  Transmission Date: 20150326
  Serious: Yes (Hospitalization)
  Sender: FDA-Public Use
  Company Number: US-BRISTOL-MYERS SQUIBB COMPANY-20790507

PATIENT
  Age: 52 Year
  Sex: Female
  Weight: 66.2 kg

DRUGS (11)
  1. ALBUTEROL. [Concomitant]
     Active Substance: ALBUTEROL
  2. VALGANCICLOVIR [Concomitant]
     Active Substance: VALGANCICLOVIR
     Dosage: DISCONTINUED ON 23-MAY-2014 DUE TO COURSE COMPLETED.
     Dates: end: 20140523
  3. ASPIRIN. [Concomitant]
     Active Substance: ASPIRIN
  4. FLUTICASONE [Concomitant]
     Active Substance: FLUTICASONE\FLUTICASONE PROPIONATE
  5. PENTAMIDINE [Concomitant]
     Active Substance: PENTAMIDINE
  6. TRAZODONE HYDROCHLORIDE. [Concomitant]
     Active Substance: TRAZODONE HYDROCHLORIDE
  7. BELATACEPT [Suspect]
     Active Substance: BELATACEPT
     Indication: IMMUNOSUPPRESSION
     Route: 042
     Dates: start: 20140221
  8. MYFORTIC [Suspect]
     Active Substance: MYCOPHENOLATE SODIUM
     Indication: IMMUNOSUPPRESSION
     Dosage: REDUCED TO 720MG/DAY
     Route: 048
     Dates: start: 20140220
  9. ONDANSETRON [Concomitant]
     Active Substance: ONDANSETRON
  10. CALCIUM + VITAMIN D [Concomitant]
     Active Substance: CALCIUM\VITAMIN D
  11. NORETHINDRONE. [Concomitant]
     Active Substance: NORETHINDRONE

REACTIONS (13)
  - Dyspnoea [Unknown]
  - Headache [Unknown]
  - Sputum discoloured [Unknown]
  - Pyrexia [Recovered/Resolved]
  - Dizziness [Unknown]
  - Vomiting [Unknown]
  - Diarrhoea [Recovered/Resolved]
  - Gastroenteritis salmonella [Unknown]
  - Wheezing [Unknown]
  - Influenza [Unknown]
  - Abdominal pain upper [Unknown]
  - Tachycardia [Recovered/Resolved]
  - Cough [Recovered/Resolved]

NARRATIVE: CASE EVENT DATE: 201405
